FAERS Safety Report 13748803 (Version 1)
Quarter: 2017Q3

REPORT INFORMATION
  Report Type: Spontaneous
  Country: US (occurrence: US)
  Receive Date: 20170712
  Receipt Date: 20170712
  Transmission Date: 20171127
  Serious: Yes (Life-Threatening)
  Sender: FDA-Public Use
  Company Number: None

PATIENT
  Age: 11 Year
  Sex: Male
  Weight: 55.35 kg

DRUGS (4)
  1. PREDNISONE. [Suspect]
     Active Substance: PREDNISONE
     Indication: URTICARIA
     Dosage: ?          OTHER FREQUENCY:ONE TIME;?
     Route: 048
     Dates: start: 20170617
  2. EPINEPHRINE AUTO INJECTOR [Concomitant]
  3. AMOXICILLIN. [Suspect]
     Active Substance: AMOXICILLIN
     Indication: EAR INFECTION
     Route: 048
     Dates: start: 20170605, end: 20170615
  4. VEGAN CALCIUM SUPPLEMENT [Concomitant]

REACTIONS (7)
  - Swelling face [None]
  - Gait disturbance [None]
  - Oropharyngeal discomfort [None]
  - Arthralgia [None]
  - Peripheral swelling [None]
  - Dizziness [None]
  - Urticaria [None]

NARRATIVE: CASE EVENT DATE: 20170618
